FAERS Safety Report 4608199-9 (Version None)
Quarter: 2005Q2

REPORT INFORMATION
  Report Type: 
  Country: None (occurrence: None)
  Receive Date: 20050303
  Receipt Date: 20041221
  Transmission Date: 20051028
  Serious: No
  Sender: FDA-Public Use
  Company Number: 702338

PATIENT
  Age: 41 Year
  Sex: Female
  Weight: 49.8957 kg

DRUGS (2)
  1. AMEVIVE [Suspect]
     Indication: PSORIASIS
     Dosage: 15 MG; QW; IM;  15 MG; QW; IM
     Route: 030
     Dates: start: 20040312, end: 20040601
  2. AMEVIVE [Suspect]
     Indication: PSORIASIS
     Dosage: 15 MG; QW; IM;  15 MG; QW; IM
     Route: 030
     Dates: start: 20040726

REACTIONS (2)
  - EPIDERMAL NAEVUS [None]
  - PIGMENTED NAEVUS [None]
